FAERS Safety Report 6977610-0 (Version None)
Quarter: 2010Q3

REPORT INFORMATION
  Report Type: 
  Country: None (occurrence: None)
  Receive Date: 20100913
  Receipt Date: 20100902
  Transmission Date: 20110219
  Serious: Yes (Hospitalization)
  Sender: FDA-Public Use
  Company Number: US-BIOGENIDEC-2010BI013830

PATIENT
  Age: 49 Year
  Sex: Male

DRUGS (2)
  1. AVONEX [Suspect]
     Indication: MULTIPLE SCLEROSIS
     Route: 030
     Dates: start: 20090619
  2. BACLOFEN [Concomitant]

REACTIONS (3)
  - DRUG DELIVERY DEVICE IMPLANTATION [None]
  - IATROGENIC INJURY [None]
  - THROMBOSIS [None]
